FAERS Safety Report 23067616 (Version 1)
Quarter: 2023Q4

REPORT INFORMATION
  Report Type: Spontaneous
  Country: US (occurrence: None)
  Receive Date: 20231016
  Receipt Date: 20231016
  Transmission Date: 20240109
  Serious: Yes (Hospitalization, Other)
  Sender: FDA-Public Use
  Company Number: US-MICRO LABS LIMITED-ML2023-05822

PATIENT
  Age: 71 Year
  Sex: Female

DRUGS (2)
  1. SODIUM NITROPRUSSIDE [Suspect]
     Active Substance: SODIUM NITROPRUSSIDE
     Indication: Cardiac failure
     Dosage: 0.25-3 MCG/KG/MIN
  2. MILRINONE [Concomitant]
     Active Substance: MILRINONE
     Indication: Product used for unknown indication

REACTIONS (5)
  - Renal impairment [Unknown]
  - Mental status changes [Unknown]
  - Lethargy [Unknown]
  - Toxicity to various agents [Unknown]
  - Confusional state [Unknown]
